FAERS Safety Report 13181230 (Version 1)
Quarter: 2017Q1

REPORT INFORMATION
  Report Type: Spontaneous
  Country: US (occurrence: US)
  Receive Date: 20170202
  Receipt Date: 20170202
  Transmission Date: 20170428
  Serious: No
  Sender: FDA-Public Use
  Company Number: US-SMITH AND NEPHEW, INC-2016SMT00936

PATIENT
  Sex: Male

DRUGS (2)
  1. UNSPECIFIED COLLAGEN PRODUCT [Suspect]
     Active Substance: COLLAGEN
     Indication: DIABETIC FOOT
     Dosage: UNK
     Route: 061
     Dates: start: 2016
  2. REGRANEX [Suspect]
     Active Substance: BECAPLERMIN
     Indication: DIABETIC FOOT
     Dosage: UNK
     Route: 061
     Dates: start: 2016

REACTIONS (3)
  - Wound complication [Unknown]
  - Wound [None]
  - Abscess [Unknown]

NARRATIVE: CASE EVENT DATE: 2016
